FAERS Safety Report 4691100-X (Version None)
Quarter: 2005Q2

REPORT INFORMATION
  Report Type: 
  Country: None (occurrence: None)
  Receive Date: 20050610
  Receipt Date: 20050601
  Transmission Date: 20051028
  Serious: Yes (Life-Threatening, Hospitalization)
  Sender: FDA-Public Use
  Company Number: 2005072284

PATIENT
  Age: 37 Year
  Sex: Female
  Weight: 85 kg

DRUGS (1)
  1. FRAGMIN [Suspect]
     Indication: ILL-DEFINED DISORDER
     Dosage: 450000 I.U. (7500 I.U. 1 IN 1 D), SUBCUTANEOUS
     Route: 058
     Dates: start: 20050401, end: 20050401

REACTIONS (8)
  - ABDOMINAL HAEMATOMA [None]
  - ACTIVATED PARTIAL THROMBOPLASTIN TIME PROLONGED [None]
  - DEEP VEIN THROMBOSIS [None]
  - HAEMODIALYSIS [None]
  - OVERDOSE [None]
  - PHLEBITIS [None]
  - PULMONARY EMBOLISM [None]
  - SUICIDE ATTEMPT [None]
